FAERS Safety Report 4307329-6 (Version None)
Quarter: 2004Q1

REPORT INFORMATION
  Report Type: 
  Country: None (occurrence: None)
  Receive Date: 20040226
  Receipt Date: 20040211
  Transmission Date: 20041129
  Serious: Yes (Death, Hospitalization)
  Sender: FDA-Public Use
  Company Number: 000784

PATIENT
  Age: 80 Year
  Sex: Male
  Weight: 70.7 kg

DRUGS (12)
  1. ZEVALIN [Suspect]
     Indication: NON-HODGKIN'S LYMPHOMA
     Dosage: 500 MG, SINGLE RITUXAN DOSE 1, INTRAVENOUS
     Route: 042
     Dates: start: 20040203, end: 20040203
  2. ZEVALIN [Suspect]
     Dosage: 5.05 MCI, SINGLE, IN-[111]ZEVALIN, INTRAVENOUS
     Route: 042
     Dates: start: 20040203, end: 20040203
  3. TEGRETOL [Concomitant]
  4. VICODIN [Concomitant]
  5. BIAXIN [Concomitant]
  6. ALLOPURINOL [Concomitant]
  7. BACTRIM DS [Concomitant]
  8. PLAVIX [Concomitant]
  9. LOVASTATIN [Concomitant]
  10. ATENOLOL [Concomitant]
  11. ASPIRIN [Concomitant]
  12. PREDNISONE [Concomitant]

REACTIONS (12)
  - ACUTE PRERENAL FAILURE [None]
  - ASTHENIA [None]
  - B-CELL LYMPHOMA [None]
  - COMA [None]
  - CONFUSIONAL STATE [None]
  - DEHYDRATION [None]
  - HAEMATOCRIT DECREASED [None]
  - HAEMOGLOBIN DECREASED [None]
  - HYPERCALCAEMIA [None]
  - MALIGNANT NEOPLASM PROGRESSION [None]
  - NON-HODGKIN'S LYMPHOMA [None]
  - PLATELET COUNT DECREASED [None]
